FAERS Safety Report 11520115 (Version 1)
Quarter: 2015Q3

REPORT INFORMATION
  Report Type: Spontaneous
  Country: US (occurrence: US)
  Receive Date: 20150918
  Receipt Date: 20150918
  Transmission Date: 20151125
  Serious: No
  Sender: FDA-Public Use
  Company Number: US-RB-071532-14

PATIENT

DRUGS (1)
  1. MUCINEX MAXIMUM STRENGTH [Suspect]
     Active Substance: GUAIFENESIN
     Indication: CHRONIC OBSTRUCTIVE PULMONARY DISEASE
     Dosage: 1200MG. AMOUT USED: 5 IN TOTAL; TOOK PRODUCT LAST ON 02-DEC-2014 AT 11:00 AM.,BID
     Route: 065
     Dates: start: 20141130

REACTIONS (2)
  - No adverse event [Unknown]
  - Product use issue [Unknown]
